FAERS Safety Report 4903497-3 (Version None)
Quarter: 2006Q1

REPORT INFORMATION
  Report Type: 
  Country: None (occurrence: None)
  Receive Date: 20060206
  Receipt Date: 20060206
  Transmission Date: 20060701
  Serious: Yes (Other)
  Sender: FDA-Public Use
  Company Number: None

PATIENT
  Sex: Male

DRUGS (1)
  1. ULTRAVIST 370 [Suspect]
     Indication: ANGIOPATHY
     Dosage: 75 MG IV
     Route: 042

REACTIONS (3)
  - CHEST DISCOMFORT [None]
  - COUGH [None]
  - URTICARIA [None]
